FAERS Safety Report 9569662 (Version 2)
Quarter: 2013Q3

REPORT INFORMATION
  Report Type: Spontaneous
  Country: US (occurrence: US)
  Receive Date: 20130930
  Receipt Date: 20130930
  Transmission Date: 20140515
  Serious: No
  Sender: FDA-Public Use
  Company Number: US-AMGEN-USASP2013062911

PATIENT
  Age: 58 Year
  Sex: Female
  Weight: 83.9 kg

DRUGS (8)
  1. ENBREL [Suspect]
     Indication: RHEUMATOID ARTHRITIS
     Dosage: 50 MG, QWK
     Route: 058
     Dates: start: 20120829
  2. PREDNISONE [Concomitant]
     Dosage: 10 MG, UNK
  3. IRON [Concomitant]
     Dosage: 21/7 MIS
  4. ALEVE [Concomitant]
     Dosage: 220 MG, UNK
  5. BIOTIN [Concomitant]
     Dosage: 5000
  6. OXYCONTIN [Concomitant]
     Dosage: 10 MG, UNK
  7. MAGNESIUM CALCIUM [Concomitant]
     Dosage: UNK
  8. LEFLUNOMIDE [Concomitant]
     Dosage: UNK
     Dates: start: 20130201

REACTIONS (12)
  - Pallor [Unknown]
  - Arthralgia [Not Recovered/Not Resolved]
  - Back pain [Unknown]
  - Neck pain [Recovered/Resolved]
  - Sleep disorder due to general medical condition, insomnia type [Not Recovered/Not Resolved]
  - Mobility decreased [Not Recovered/Not Resolved]
  - Musculoskeletal pain [Recovered/Resolved]
  - Fatigue [Recovered/Resolved]
  - Migraine with aura [Recovered/Resolved]
  - Decreased appetite [Recovered/Resolved]
  - Anaemia [Not Recovered/Not Resolved]
  - Injection site pain [Not Recovered/Not Resolved]
